FAERS Safety Report 18472843 (Version 1)
Quarter: 2020Q4

REPORT INFORMATION
  Report Type: Spontaneous
  Country: US (occurrence: US)
  Receive Date: 20201105
  Receipt Date: 20201105
  Transmission Date: 20210114
  Serious: Yes (Hospitalization)
  Sender: FDA-Public Use
  Company Number: None

PATIENT
  Age: 61 Year
  Sex: Female

DRUGS (2)
  1. N/A [Concomitant]
     Active Substance: UNSPECIFIED INGREDIENT
  2. SPRYCEL [Suspect]
     Active Substance: DASATINIB
     Indication: CARCINOID TUMOUR
     Route: 048
     Dates: start: 20180201

REACTIONS (2)
  - Clostridium difficile infection [None]
  - Therapy interrupted [None]

NARRATIVE: CASE EVENT DATE: 20200720
